FAERS Safety Report 10416611 (Version 2)
Quarter: 2014Q3

REPORT INFORMATION
  Report Type: Spontaneous
  Country: JP (occurrence: JP)
  Receive Date: 20140828
  Receipt Date: 20140908
  Transmission Date: 20150326
  Serious: Yes (Hospitalization)
  Sender: FDA-Public Use
  Company Number: JP-AMGEN-JPNSP2014065695

PATIENT
  Age: 8 Decade
  Sex: Male

DRUGS (4)
  1. CALCIUM LEVOFOLINATE [Concomitant]
     Active Substance: LEVOLEUCOVORIN CALCIUM
     Indication: COLON CANCER
     Dosage: UNK, Q2WEEKS
     Route: 041
     Dates: start: 20131010
  2. VECTIBIX [Suspect]
     Active Substance: PANITUMUMAB
     Indication: COLON CANCER
     Dosage: 300 MG, Q2WEEKS
     Route: 041
     Dates: start: 20131010, end: 20140820
  3. FLUOROURACIL. [Concomitant]
     Active Substance: FLUOROURACIL
     Indication: COLON CANCER
     Dosage: UNK, Q2WEEKS
     Route: 042
     Dates: start: 20131010
  4. IRINOTECAN HYDROCHLORIDE. [Concomitant]
     Active Substance: IRINOTECAN HYDROCHLORIDE
     Indication: COLON CANCER
     Dosage: UNK, Q2WEEKS
     Route: 041
     Dates: start: 20131010

REACTIONS (1)
  - Benign prostatic hyperplasia [Unknown]

NARRATIVE: CASE EVENT DATE: 20140820
